FAERS Safety Report 8904121 (Version 1)
Quarter: 2012Q4

REPORT INFORMATION
  Report Type: 
  Country: US (occurrence: US)
  Receive Date: 20121112
  Receipt Date: 20121112
  Transmission Date: 20130627
  Serious: No
  Sender: FDA-Public Use
  Company Number: US-COVIDIEN/TYCO HEALTHCARE/MALLINCKRODT-T201203083

PATIENT
  Age: 67 None
  Sex: Female

DRUGS (3)
  1. FENTANYL TRANSDERMAL SYSTEM [Suspect]
     Indication: PAIN
     Dosage: 25 ug/hr, Q 72hrs
     Route: 062
     Dates: start: 20120811
  2. CLONAZEPAM [Concomitant]
     Indication: ANXIETY
     Dosage: UNK
  3. ULTRAM [Concomitant]
     Dosage: UNK

REACTIONS (5)
  - Sudden onset of sleep [Not Recovered/Not Resolved]
  - Fatigue [Not Recovered/Not Resolved]
  - Nausea [Not Recovered/Not Resolved]
  - Vomiting [Recovered/Resolved]
  - Diarrhoea [Not Recovered/Not Resolved]
